FAERS Safety Report 24367772 (Version 1)
Quarter: 2024Q3

REPORT INFORMATION
  Report Type: Spontaneous
  Country: FR (occurrence: FR)
  Receive Date: 20240926
  Receipt Date: 20240926
  Transmission Date: 20241016
  Serious: Yes (Other)
  Sender: PURDUE
  Company Number: FR-ETHYPHARM-2024002458

PATIENT
  Sex: Male

DRUGS (1)
  1. MORPHINE SULFATE [Suspect]
     Active Substance: MORPHINE SULFATE
     Indication: Substance use
     Dosage: UNK
     Route: 048

REACTIONS (7)
  - Drug abuse [Unknown]
  - Sedation [Unknown]
  - Vomiting [Unknown]
  - Headache [Unknown]
  - Paranoia [Unknown]
  - Euphoric mood [Unknown]
  - Nausea [Unknown]
